FAERS Safety Report 6930509-8 (Version None)
Quarter: 2010Q3

REPORT INFORMATION
  Report Type: 
  Country: None (occurrence: None)
  Receive Date: 20100818
  Receipt Date: 20100810
  Transmission Date: 20110219
  Serious: Yes (Hospitalization)
  Sender: FDA-Public Use
  Company Number: A0852383A

PATIENT
  Sex: Female

DRUGS (3)
  1. LAMICTAL [Suspect]
     Indication: EPILEPSY
     Dosage: 25MG TWICE PER DAY
     Route: 048
     Dates: start: 20051101
  2. LAMOTRIGINE [Suspect]
     Indication: EPILEPSY
     Dosage: 25MG TWICE PER DAY
     Route: 048
     Dates: start: 20090401, end: 20090101
  3. NO CONCURRENT MEDICATION [Concomitant]

REACTIONS (5)
  - ABORTION INDUCED [None]
  - CONVULSION [None]
  - DRUG EXPOSURE DURING PREGNANCY [None]
  - PRODUCT SUBSTITUTION ISSUE [None]
  - TREATMENT NONCOMPLIANCE [None]
